FAERS Safety Report 6030052-7 (Version None)
Quarter: 2009Q1

REPORT INFORMATION
  Report Type: 
  Country: None (occurrence: None)
  Receive Date: 20090107
  Receipt Date: 20090105
  Transmission Date: 20090719
  Serious: Yes (Death)
  Sender: FDA-Public Use
  Company Number: IT-TEVA-183343ISR

PATIENT
  Age: 6 Year
  Sex: Male

DRUGS (7)
  1. METHOTREXATE [Suspect]
     Indication: GRAFT VERSUS HOST DISEASE
     Dates: start: 19870101
  2. METHOTREXATE [Suspect]
  3. METHYLPREDNISOLONE 16MG TAB [Suspect]
  4. PREDNISONE [Suspect]
  5. AZATHIOPRINE [Suspect]
  6. THALIDOMIDE [Suspect]
  7. MELPHALAN [Suspect]
     Dates: start: 19920101

REACTIONS (1)
  - SQUAMOUS CELL CARCINOMA [None]
